FAERS Safety Report 4917290-9 (Version None)
Quarter: 2006Q1

REPORT INFORMATION
  Report Type: 
  Country: None (occurrence: None)
  Receive Date: 20060221
  Receipt Date: 20060126
  Transmission Date: 20060701
  Serious: Yes (Other)
  Sender: FDA-Public Use
  Company Number: JP-AVENTIS-200610368JP

PATIENT
  Age: 78 Year
  Sex: Male

DRUGS (4)
  1. ALLEGRA [Suspect]
     Indication: PRURITUS
     Route: 048
  2. ALLEGRA [Suspect]
     Route: 048
  3. ALLEGRA [Suspect]
     Route: 048
  4. ALLELOCK [Concomitant]
     Indication: PRURITUS

REACTIONS (1)
  - ATRIAL FIBRILLATION [None]
